FAERS Safety Report 24389920 (Version 1)
Quarter: 2024Q4

REPORT INFORMATION
  Report Type: Spontaneous
  Country: CN (occurrence: CN)
  Receive Date: 20241003
  Receipt Date: 20241003
  Transmission Date: 20250115
  Serious: Yes (Hospitalization, Other)
  Sender: Haleon PLC
  Company Number: CN-HALEON-2199343

PATIENT
  Age: 62 Year
  Sex: Female
  Weight: 62 kg

DRUGS (1)
  1. DICLOFENAC SODIUM [Suspect]
     Active Substance: DICLOFENAC SODIUM
     Indication: Arthralgia
     Route: 048
     Dates: start: 20240905, end: 20240908

REACTIONS (27)
  - Liver injury [Recovering/Resolving]
  - Rash [Recovering/Resolving]
  - Erythema [Recovering/Resolving]
  - Papule [Recovering/Resolving]
  - Blister [Recovering/Resolving]
  - Oral disorder [Recovering/Resolving]
  - Lip disorder [Recovering/Resolving]
  - Conjunctival disorder [Recovering/Resolving]
  - Eyelid disorder [Recovering/Resolving]
  - Vulval disorder [Recovering/Resolving]
  - Ulcer [Recovering/Resolving]
  - Skin erosion [Recovering/Resolving]
  - Secretion discharge [Recovering/Resolving]
  - Rash [Recovering/Resolving]
  - Skin exfoliation [Recovering/Resolving]
  - Drug eruption [Recovering/Resolving]
  - Pyrexia [Recovering/Resolving]
  - White blood cell count increased [Recovering/Resolving]
  - Renal disorder [Recovering/Resolving]
  - Infection [Recovering/Resolving]
  - Skin injury [Recovering/Resolving]
  - Dermatitis [Recovering/Resolving]
  - Systemic lupus erythematosus [Recovering/Resolving]
  - Incorrect dose administered [Unknown]
  - Conjunctival hyperaemia [Recovering/Resolving]
  - Erythema of eyelid [Recovering/Resolving]
  - Oral mucosal erythema [Recovering/Resolving]

NARRATIVE: CASE EVENT DATE: 20240905
